FAERS Safety Report 21473545 (Version 1)
Quarter: 2022Q4

REPORT INFORMATION
  Report Type: Spontaneous
  Country: NO (occurrence: NO)
  Receive Date: 20221018
  Receipt Date: 20221018
  Transmission Date: 20230112
  Serious: Yes (Other)
  Sender: FDA-Public Use
  Company Number: None

PATIENT
  Age: 32 Year
  Sex: Female
  Weight: 90 kg

DRUGS (2)
  1. CLINDAMYCIN HYDROCHLORIDE [Suspect]
     Active Substance: CLINDAMYCIN HYDROCHLORIDE
     Indication: Tooth infection
     Dosage: 1 DF, 4X/DAY
     Dates: start: 202202, end: 202202
  2. IRON [Concomitant]
     Active Substance: IRON

REACTIONS (6)
  - Diarrhoea haemorrhagic [Unknown]
  - Mucous stools [Unknown]
  - Clostridial infection [Recovered/Resolved with Sequelae]
  - Diarrhoea [Unknown]
  - Frequent bowel movements [Unknown]
  - Faeces soft [Unknown]

NARRATIVE: CASE EVENT DATE: 20220201
